FAERS Safety Report 7502597-1 (Version None)
Quarter: 2011Q2

REPORT INFORMATION
  Report Type: 
  Country: None (occurrence: None)
  Receive Date: 20110524
  Receipt Date: 20110524
  Transmission Date: 20111010
  Serious: Yes (Life-Threatening)
  Sender: FDA-Public Use
  Company Number: None

PATIENT
  Age: 65 Year
  Sex: Male
  Weight: 86.1834 kg

DRUGS (2)
  1. NITROSTAT [Suspect]
     Indication: CHEST DISCOMFORT
     Dates: start: 20110515, end: 20110515
  2. NITROSTAT [Suspect]
     Indication: ATRIOVENTRICULAR BLOCK
     Dates: start: 20110515, end: 20110515

REACTIONS (5)
  - RASH [None]
  - LIP SWELLING [None]
  - OEDEMA PERIPHERAL [None]
  - SWOLLEN TONGUE [None]
  - MOVEMENT DISORDER [None]
